FAERS Safety Report 25772868 (Version 1)
Quarter: 2025Q3

REPORT INFORMATION
  Report Type: Report from Study
  Country: EU (occurrence: EU)
  Receive Date: 20250908
  Receipt Date: 20250908
  Transmission Date: 20251020
  Serious: Yes (Hospitalization, Other)
  Sender: SANOFI AVENTIS
  Company Number: EU-SA-2025SA020273

PATIENT
  Age: 58 Year
  Sex: Female
  Weight: 67 kg

DRUGS (8)
  1. TEPLIZUMAB [Suspect]
     Active Substance: TEPLIZUMAB
     Indication: Diabetes prophylaxis
     Dosage: UNK UNK, QD
     Route: 042
     Dates: start: 20250106, end: 20250119
  2. LEVOTHYROXINE SODIUM [Concomitant]
     Active Substance: LEVOTHYROXINE SODIUM
     Indication: Hypothyroidism
     Dosage: 100 U, QD
     Route: 048
  3. FLUDROCORTISONE ACETATE [Concomitant]
     Active Substance: FLUDROCORTISONE ACETATE
     Indication: Product used for unknown indication
     Dosage: 50 UG, BID
     Route: 048
  4. CETIRIZINE [Concomitant]
     Active Substance: CETIRIZINE HYDROCHLORIDE
  5. HYDROCORTISONE [Concomitant]
     Active Substance: HYDROCORTISONE
     Indication: Product used for unknown indication
     Dosage: 10 MG, Q6H
     Route: 048
     Dates: start: 2025
  6. ACETAMINOPHEN [Concomitant]
     Active Substance: ACETAMINOPHEN
     Indication: Premedication
     Dates: start: 20250106
  7. POLARAMINE [Concomitant]
     Active Substance: DEXCHLORPHENIRAMINE MALEATE
     Dates: start: 20250114
  8. ONDANSETRON [Concomitant]
     Active Substance: ONDANSETRON
     Indication: Premedication
     Dates: start: 20250106

REACTIONS (29)
  - Mononucleosis syndrome [Recovered/Resolved]
  - Oropharyngeal pain [Recovered/Resolved]
  - Abdominal pain [Recovered/Resolved]
  - Epstein-Barr virus infection reactivation [Unknown]
  - Leukopenia [Recovered/Resolved]
  - Pharyngotonsillitis [Unknown]
  - Odynophagia [Recovered/Resolved]
  - Tonsillitis [Recovered/Resolved]
  - Asthenia [Recovering/Resolving]
  - Influenza like illness [Unknown]
  - Peripheral swelling [Unknown]
  - Pruritus [Recovered/Resolved]
  - Hypoaesthesia [Unknown]
  - Night sweats [Not Recovered/Not Resolved]
  - Skin exfoliation [Unknown]
  - Basophilia [Unknown]
  - Oropharyngeal pain [Not Recovered/Not Resolved]
  - Rash [Recovered/Resolved]
  - Fatigue [Recovered/Resolved]
  - Nausea [Unknown]
  - Urticaria [Recovering/Resolving]
  - Diarrhoea [Unknown]
  - Myalgia [Unknown]
  - Vomiting [Recovered/Resolved]
  - Arthralgia [Unknown]
  - Headache [Unknown]
  - Pyrexia [Recovered/Resolved]
  - Lymphopenia [Recovered/Resolved]
  - Fatigue [Not Recovered/Not Resolved]

NARRATIVE: CASE EVENT DATE: 20250101
